FAERS Safety Report 8418493-1 (Version None)
Quarter: 2012Q2

REPORT INFORMATION
  Report Type: 
  Country: None (occurrence: None)
  Receive Date: 20120607
  Receipt Date: 20120530
  Transmission Date: 20120825
  Serious: Yes (Other)
  Sender: FDA-Public Use
  Company Number: US-ASTELLAS-2012US005183

PATIENT
  Sex: Female
  Weight: 68 kg

DRUGS (1)
  1. ERLOTINIB HYDROCHLORIDE [Suspect]
     Indication: LUNG NEOPLASM MALIGNANT
     Dosage: 150 MG, UID/QD
     Route: 048
     Dates: start: 20120430, end: 20120530

REACTIONS (8)
  - ARTHRALGIA [None]
  - NECK PAIN [None]
  - RASH [None]
  - VOMITING [None]
  - VULVOVAGINAL PAIN [None]
  - MYALGIA [None]
  - BACK PAIN [None]
  - HEADACHE [None]
